FAERS Safety Report 17714366 (Version 2)
Quarter: 2020Q3

REPORT INFORMATION
  Report Type: Spontaneous
  Country: FR (occurrence: FR)
  Receive Date: 20200427
  Receipt Date: 20200908
  Transmission Date: 20201102
  Serious: Yes (Other)
  Sender: FDA-Public Use
  Company Number: FR-SAMSUNG BIOEPIS-SB-2020-13559

PATIENT
  Age: 44 Year
  Sex: Female
  Weight: 88 kg

DRUGS (43)
  1. FLIXABI [Suspect]
     Active Substance: INFLIXIMAB
     Indication: ANKYLOSING SPONDYLITIS
     Route: 041
     Dates: start: 2018, end: 20190125
  2. FLIXABI [Suspect]
     Active Substance: INFLIXIMAB
     Route: 042
     Dates: start: 20180622, end: 20180622
  3. POLARAMINE [Concomitant]
     Active Substance: DEXCHLORPHENIRAMINE MALEATE
     Dosage: UNKNOWN, 5 MG/ 1 ML
     Route: 042
     Dates: start: 20190125, end: 20190125
  4. POLARAMINE [Concomitant]
     Active Substance: DEXCHLORPHENIRAMINE MALEATE
     Dosage: UNKNOWN, 5 MG/ 1 ML
     Route: 042
     Dates: start: 20180914, end: 20180914
  5. MORPHINE [Concomitant]
     Active Substance: MORPHINE
     Indication: PRODUCT USED FOR UNKNOWN INDICATION
     Dosage: 0 TO 10 MG PER DAY, 10 MG.ML
     Route: 042
     Dates: start: 20180613, end: 20180614
  6. FLIXABI [Suspect]
     Active Substance: INFLIXIMAB
     Route: 042
     Dates: start: 20180803, end: 20180804
  7. METHYLPREDNISOLONE. [Concomitant]
     Active Substance: METHYLPREDNISOLONE
     Dosage: 2 BOTTLES PER DAY
     Route: 042
     Dates: start: 20181214, end: 20181214
  8. KETOPROFENE [Concomitant]
     Active Substance: KETOPROFEN
     Indication: PRODUCT USED FOR UNKNOWN INDICATION
     Dosage: UNKNOWN, 100MG/4ML, 1 AMPOULE IN THE MORNING, MIDDAY AND NIGHT
     Route: 042
     Dates: start: 20180803, end: 20180808
  9. FLIXABI [Suspect]
     Active Substance: INFLIXIMAB
     Dosage: AT MIDDAY
     Route: 042
     Dates: start: 20180302, end: 20180302
  10. METHYLPREDNISOLONE. [Concomitant]
     Active Substance: METHYLPREDNISOLONE
     Dosage: 2 BOTTLES PER DAY
     Route: 042
     Dates: start: 20190125, end: 20190125
  11. METHYLPREDNISOLONE. [Concomitant]
     Active Substance: METHYLPREDNISOLONE
     Dosage: 2 BOTTLES PER DAY
     Route: 042
     Dates: start: 20181105, end: 20181105
  12. KETOPROFENE [Concomitant]
     Active Substance: KETOPROFEN
     Dosage: UNKNOWN, DIVISIBLE TABLET WITH PROLONGED LIBERATION, 1 TABLET IN THE MORNING AND THE EVENING
     Route: 002
     Dates: start: 20180808, end: 20180810
  13. ZAMUDOL [Concomitant]
     Active Substance: TRAMADOL HYDROCHLORIDE
     Indication: PRODUCT USED FOR UNKNOWN INDICATION
     Route: 002
     Dates: start: 20180613, end: 20180613
  14. TRAMADOL. [Concomitant]
     Active Substance: TRAMADOL
     Indication: PRODUCT USED FOR UNKNOWN INDICATION
     Route: 002
     Dates: start: 20180613, end: 20180613
  15. FLIXABI [Suspect]
     Active Substance: INFLIXIMAB
     Route: 042
     Dates: start: 20190125, end: 20190125
  16. ATARAX [Concomitant]
     Active Substance: HYDROXYZINE HYDROCHLORIDE
     Dosage: UNKNOWN
     Route: 002
     Dates: start: 20181214, end: 20181214
  17. POLARAMINE [Concomitant]
     Active Substance: DEXCHLORPHENIRAMINE MALEATE
     Dosage: UNKNOWN, 5 MG/ 1 ML
     Route: 042
     Dates: start: 20181214, end: 20181214
  18. KETOPROFENE [Concomitant]
     Active Substance: KETOPROFEN
     Dosage: UNKNOWN, 100MG/4ML, 1 AMPOULE IF NEEDED, 2 TIMES A DAY
     Route: 042
     Dates: start: 20180427, end: 20180427
  19. PARACETAMOL [Concomitant]
     Active Substance: ACETAMINOPHEN
     Dosage: 1 TO 4 POUCHES PER DAY IF NEEDED, INTERVAL BETWEEN 2 INTAKES?1G/100 ML
     Route: 042
     Dates: start: 20180614, end: 20180614
  20. FLIXABI [Suspect]
     Active Substance: INFLIXIMAB
     Route: 042
     Dates: start: 20180427, end: 20180427
  21. FLIXABI [Suspect]
     Active Substance: INFLIXIMAB
     Route: 042
     Dates: start: 20181214, end: 20181214
  22. FLIXABI [Suspect]
     Active Substance: INFLIXIMAB
     Route: 042
     Dates: start: 20181105, end: 20181105
  23. LAMALINE [Concomitant]
     Indication: PRODUCT USED FOR UNKNOWN INDICATION
     Dosage: UNKNOWN, 2 CAPSULES IN THE MORNING, MIDDAY AND NIGHT
     Route: 002
     Dates: start: 20180803, end: 20180810
  24. MORPHINE [Concomitant]
     Active Substance: MORPHINE
     Dosage: 0 TO 10 MG PER DAY, 10 MG.ML
     Route: 042
     Dates: start: 20180614, end: 20180615
  25. TRAMADOL. [Concomitant]
     Active Substance: TRAMADOL
     Dosage: 1 TO 3 AMPOULES PER DAY IF NEEDED, INTERVAL BETWEEN INTAKES : 8 HOURS
     Route: 042
     Dates: start: 20180614, end: 20180614
  26. FLIXABI [Suspect]
     Active Substance: INFLIXIMAB
     Route: 042
     Dates: start: 20180914, end: 20180914
  27. POLARAMINE [Concomitant]
     Active Substance: DEXCHLORPHENIRAMINE MALEATE
     Indication: PRODUCT USED FOR UNKNOWN INDICATION
     Dosage: UNKNOWN, 5 MG/ 1 ML
     Route: 042
     Dates: start: 20180803, end: 20180804
  28. KETOPROFENE [Concomitant]
     Active Substance: KETOPROFEN
     Dosage: UNKNOWN, 100MG/4ML, 1 AMPOULE IF NEEDED, TWO TIMES A DAY
     Route: 042
     Dates: start: 20180410, end: 20180411
  29. INEXIUM [Concomitant]
     Active Substance: ESOMEPRAZOLE
     Indication: PRODUCT USED FOR UNKNOWN INDICATION
     Dosage: UNKNOWN
     Route: 002
     Dates: start: 20180803, end: 20180810
  30. FRAGMINE [Concomitant]
     Active Substance: DALTEPARIN SODIUM
     Indication: PRODUCT USED FOR UNKNOWN INDICATION
     Dosage: UNKNOWN, 5000 UI/ 0.2 ML?1 SYRINGE AT MIDDAY
     Route: 058
     Dates: start: 20180803, end: 20180810
  31. SODIUM BICARBONATE. [Concomitant]
     Active Substance: SODIUM BICARBONATE
     Indication: PRODUCT USED FOR UNKNOWN INDICATION
     Dosage: UNKNOWN, 1,4 PERCENTAGE IN 500 ML, 1 BOTTLE ONCE PER 24 HOUR
     Route: 042
     Dates: start: 20180410, end: 20180411
  32. PARACETAMOL [Concomitant]
     Active Substance: ACETAMINOPHEN
     Dosage: 1 POUCH IF NEEDED, 4 TIMES A DAY?1G/100 ML
     Route: 042
     Dates: start: 20180410, end: 20180411
  33. METHYLPREDNISOLONE. [Concomitant]
     Active Substance: METHYLPREDNISOLONE
     Indication: PRODUCT USED FOR UNKNOWN INDICATION
     Dosage: 2 BOTTLES PER DAY
     Route: 042
     Dates: start: 20180803, end: 20180804
  34. METHYLPREDNISOLONE. [Concomitant]
     Active Substance: METHYLPREDNISOLONE
     Dosage: UNKNOWN
     Route: 042
     Dates: start: 20180614, end: 20180614
  35. ATARAX [Concomitant]
     Active Substance: HYDROXYZINE HYDROCHLORIDE
     Indication: PRODUCT USED FOR UNKNOWN INDICATION
     Dosage: UNKNOWN
     Route: 002
     Dates: start: 20180803, end: 20180810
  36. POLARAMINE [Concomitant]
     Active Substance: DEXCHLORPHENIRAMINE MALEATE
     Dosage: UNKNOWN, 5 MG/ 1 ML
     Route: 042
     Dates: start: 20181105, end: 20181105
  37. INEXIUM [Concomitant]
     Active Substance: ESOMEPRAZOLE
     Dosage: UNKNOWN
     Route: 002
     Dates: start: 20180614, end: 20180615
  38. PANTOPRAZOLE [Concomitant]
     Active Substance: PANTOPRAZOLE
     Indication: PRODUCT USED FOR UNKNOWN INDICATION
     Dosage: UNKNOWN, 1 BOTTLE / 15 MIN, ONCE PER 24 HOUR
     Route: 042
     Dates: start: 20180410, end: 20180411
  39. PARACETAMOL [Concomitant]
     Active Substance: ACETAMINOPHEN
     Indication: PRODUCT USED FOR UNKNOWN INDICATION
     Dosage: 1 POUCH PER DAY?1G/100 ML
     Route: 042
     Dates: start: 20180613, end: 20180614
  40. KETOPROFENE [Concomitant]
     Active Substance: KETOPROFEN
     Dosage: UNKNOWN, 100MG/4ML, 1 AMPOULE AT MIDDAY
     Route: 042
     Dates: start: 20180302, end: 20180302
  41. KETOPROFENE [Concomitant]
     Active Substance: KETOPROFEN
     Dosage: UNKNOWN, 100MG/4ML, 1 AMPOULE IN THE MORNING, MIDDAY AND EVENING
     Route: 042
     Dates: start: 20180614, end: 20180615
  42. INEXIUM [Concomitant]
     Active Substance: ESOMEPRAZOLE
     Dosage: UNKNOWN, SACHET
     Route: 002
     Dates: start: 20180410, end: 20180410
  43. DOLIPRANE [Concomitant]
     Active Substance: ACETAMINOPHEN
     Indication: PRODUCT USED FOR UNKNOWN INDICATION
     Dosage: IN THE MORNING, AT MIDDAY, EVENING AND AT NIGHT IF NEEDED
     Route: 002
     Dates: start: 20180614, end: 20180615

REACTIONS (9)
  - Inflammation [Unknown]
  - Ankylosing spondylitis [Unknown]
  - Drug hypersensitivity [Unknown]
  - Drug ineffective [Recovered/Resolved]
  - Influenza [Unknown]
  - Dermatitis allergic [Unknown]
  - Dyspnoea [Unknown]
  - Drug specific antibody present [Recovered/Resolved]
  - Weight increased [Unknown]

NARRATIVE: CASE EVENT DATE: 20190125
